FAERS Safety Report 17250991 (Version 1)
Quarter: 2020Q1

REPORT INFORMATION
  Report Type: Spontaneous
  Country: GB (occurrence: GB)
  Receive Date: 20200109
  Receipt Date: 20200109
  Transmission Date: 20200409
  Serious: Yes (Hospitalization)
  Sender: FDA-Public Use
  Company Number: GB-TEVA-2020-GB-1164174

PATIENT
  Age: 71 Year
  Sex: Female

DRUGS (5)
  1. ATORVASTATIN [Suspect]
     Active Substance: ATORVASTATIN
     Indication: PROPHYLAXIS
     Dosage: 80MG PER DAY
     Route: 048
     Dates: start: 20191001, end: 20191205
  2. ACETYLSALICYLIC ACID [Concomitant]
     Active Substance: ASPIRIN
  3. CLOPIDOGREL [Concomitant]
     Active Substance: CLOPIDOGREL BISULFATE
  4. RAMIPRIL. [Concomitant]
     Active Substance: RAMIPRIL
  5. BISOPROLOL [Concomitant]
     Active Substance: BISOPROLOL

REACTIONS (4)
  - Anuria [Unknown]
  - Dehydration [Unknown]
  - Diarrhoea [Recovered/Resolved with Sequelae]
  - Acute kidney injury [Unknown]
